FAERS Safety Report 9982113 (Version 1)
Quarter: 2014Q1

REPORT INFORMATION
  Report Type: Spontaneous
  Country: US (occurrence: US)
  Receive Date: 20140307
  Receipt Date: 20140307
  Transmission Date: 20141002
  Serious: No
  Sender: FDA-Public Use
  Company Number: US-ABBVIE-13P-163-1177411-00

PATIENT
  Age: 3 Year
  Sex: Female
  Weight: 15.3 kg

DRUGS (3)
  1. HUMIRA [Suspect]
     Indication: JUVENILE IDIOPATHIC ARTHRITIS
     Route: 058
     Dates: start: 201309
  2. HUMIRA [Suspect]
     Indication: UVEITIS
  3. PRED FORTE [Concomitant]
     Indication: UVEITIS

REACTIONS (7)
  - Rhinorrhoea [Not Recovered/Not Resolved]
  - Malaise [Not Recovered/Not Resolved]
  - Off label use [Unknown]
  - Off label use [Unknown]
  - Cough [Not Recovered/Not Resolved]
  - Uveitis [Unknown]
  - Juvenile idiopathic arthritis [Unknown]
